FAERS Safety Report 15191888 (Version 4)
Quarter: 2018Q4

REPORT INFORMATION
  Report Type: Spontaneous
  Country: US (occurrence: US)
  Receive Date: 20180724
  Receipt Date: 20181002
  Transmission Date: 20190204
  Serious: Yes (Hospitalization, Other)
  Sender: FDA-Public Use
  Company Number: US-ACTELION-A-NJ2018-175794

PATIENT
  Age: 40 Year
  Sex: Female

DRUGS (23)
  1. ALDACTONE [Concomitant]
     Active Substance: SPIRONOLACTONE
  2. DOPAMINE [Concomitant]
     Active Substance: DOPAMINE\DOPAMINE HYDROCHLORIDE
  3. AMIODARONE [Concomitant]
     Active Substance: AMIODARONE
  4. COUMADIN [Concomitant]
     Active Substance: WARFARIN SODIUM
  5. TOPROL XL [Concomitant]
     Active Substance: METOPROLOL SUCCINATE
  6. VELETRI [Suspect]
     Active Substance: EPOPROSTENOL
     Indication: PULMONARY HYPERTENSION
     Dosage: 19 NG, UNK
     Route: 042
     Dates: start: 2011
  7. VASOSTRICT [Concomitant]
     Active Substance: VASOPRESSIN
  8. MAGNESIUM [Concomitant]
     Active Substance: MAGNESIUM
  9. MORPHINE [Concomitant]
     Active Substance: MORPHINE
  10. TYLENOL EXTRA STRENGTH [Concomitant]
     Active Substance: ACETAMINOPHEN
  11. KLOR-CON [Concomitant]
     Active Substance: POTASSIUM CHLORIDE
  12. ATIVAN [Concomitant]
     Active Substance: LORAZEPAM
  13. HYDROCODONE BITARTRATE AND ACETAMINOPHEN [Concomitant]
     Active Substance: ACETAMINOPHEN\HYDROCODONE BITARTRATE
  14. LEVOTHYROXIN [Concomitant]
     Active Substance: LEVOTHYROXINE
  15. BUMEX [Concomitant]
     Active Substance: BUMETANIDE
  16. NORCO [Concomitant]
     Active Substance: ACETAMINOPHEN\HYDROCODONE BITARTRATE
  17. LETAIRIS [Suspect]
     Active Substance: AMBRISENTAN
     Indication: DRUG ABUSE
     Dosage: 10 MG, QD
     Route: 065
     Dates: start: 20110722, end: 20180823
  18. DIURIL [Concomitant]
     Active Substance: CHLOROTHIAZIDE
  19. REVATIO [Concomitant]
     Active Substance: SILDENAFIL CITRATE
  20. ONDANSETRON [Concomitant]
     Active Substance: ONDANSETRON
  21. SENNOSIDE [Concomitant]
     Active Substance: SENNOSIDES
  22. TRAMADOL. [Concomitant]
     Active Substance: TRAMADOL
  23. METOLAZONE. [Concomitant]
     Active Substance: METOLAZONE

REACTIONS (9)
  - Pulmonary arterial hypertension [Unknown]
  - Nausea [Unknown]
  - Condition aggravated [Unknown]
  - Cardiac failure [Unknown]
  - Renal impairment [Unknown]
  - Respiratory failure [Unknown]
  - Weight increased [Unknown]
  - Diarrhoea [Unknown]
  - Abdominal distension [Unknown]

NARRATIVE: CASE EVENT DATE: 20180713
